FAERS Safety Report 8876599 (Version 1)
Quarter: 2012Q4

REPORT INFORMATION
  Report Type: 
  Country: DE (occurrence: DE)
  Receive Date: 20121029
  Receipt Date: 20121029
  Transmission Date: 20130627
  Serious: Yes (Other)
  Sender: FDA-Public Use
  Company Number: PHHY2012DE096880

PATIENT
  Weight: 2.73 kg

DRUGS (5)
  1. METOPROLOL [Suspect]
     Indication: HYPERTENSION
     Dosage: Maternal dose: 47.5 mg/day
     Route: 064
  2. RESTEX [Concomitant]
     Route: 064
  3. LAMOTRIGINE [Concomitant]
     Dosage: Maternal dose: 50 mg/day
     Route: 064
  4. LEVONORGESTREL [Concomitant]
     Route: 064
  5. ETHINYLESTRADIOL [Concomitant]
     Route: 064

REACTIONS (2)
  - Small for dates baby [Unknown]
  - Foetal exposure during pregnancy [Unknown]
